FAERS Safety Report 20044604 (Version 4)
Quarter: 2021Q4

REPORT INFORMATION
  Report Type: Report from Study
  Country: CA (occurrence: CA)
  Receive Date: 20211108
  Receipt Date: 20211222
  Transmission Date: 20220304
  Serious: Yes (Hospitalization)
  Sender: FDA-Public Use
  Company Number: CA-MYOVANT SCIENCES GMBH-2021MYSCI1000581

PATIENT
  Age: 24 Year
  Sex: Female
  Weight: 113.6 kg

DRUGS (20)
  1. RELUGOLIX [Suspect]
     Active Substance: RELUGOLIX
     Indication: Endometriosis
     Dosage: 40 MILLIGRAM, QD
     Route: 048
     Dates: start: 20200504
  2. ESTRADIOL\NORETHINDRONE ACETATE [Suspect]
     Active Substance: ESTRADIOL\NORETHINDRONE ACETATE
     Indication: Endometriosis
     Dosage: ESTRADIOL 1 MG /NORETHINDRONE ACETATE 0.5 MG, QD
     Route: 048
     Dates: start: 20200504
  3. CLONAZEPAM [Concomitant]
     Active Substance: CLONAZEPAM
     Indication: Anxiety
     Dosage: 0.5 MILLIGRAM, PRN
     Route: 048
     Dates: start: 20190120
  4. IBUPROFEN [Concomitant]
     Active Substance: IBUPROFEN
     Indication: Headache
     Dosage: 200 MILLIGRAM, PRN
     Route: 048
     Dates: start: 2010
  5. IBUPROFEN [Concomitant]
     Active Substance: IBUPROFEN
     Indication: Pelvic pain
     Dosage: 200 MILLIGRAM
     Route: 048
     Dates: start: 2015
  6. ACETAMINOPHEN AND CODEINE [Concomitant]
     Active Substance: ACETAMINOPHEN\CODEINE PHOSPHATE
     Indication: Pelvic pain
     Dosage: 1 TAB, (300 MG/30 MG) PRN
     Route: 048
     Dates: start: 20191015
  7. BENZOYL PEROXIDE\CLINDAMYCIN PHOSPHATE [Concomitant]
     Active Substance: BENZOYL PEROXIDE\CLINDAMYCIN PHOSPHATE
     Indication: Acne
     Dosage: 1 APPLICATION, BID
     Route: 061
     Dates: start: 20200119
  8. WELLBUTRIN [Concomitant]
     Active Substance: BUPROPION HYDROCHLORIDE
     Indication: Depression
     Dosage: 300 MILLIGRAM, QD
     Route: 048
     Dates: start: 20201026
  9. REXULTI [Concomitant]
     Active Substance: BREXPIPRAZOLE
     Indication: Depression
     Dosage: 2 MILLIGRAM, QD
     Route: 048
     Dates: start: 20210811, end: 20211013
  10. REXULTI [Concomitant]
     Active Substance: BREXPIPRAZOLE
     Dosage: 2 MILLIGRAM, BID
     Route: 048
     Dates: start: 20211014
  11. SERTRALINE [Concomitant]
     Active Substance: SERTRALINE HYDROCHLORIDE
     Indication: Depression
     Dosage: 100 MILLIGRAM, QD
     Route: 048
     Dates: start: 20210728, end: 20211024
  12. SERTRALINE [Concomitant]
     Active Substance: SERTRALINE HYDROCHLORIDE
     Indication: Anxiety
     Dosage: 200 MILLIGRAM, QD
     Route: 048
     Dates: start: 20211025, end: 202110
  13. LORAZEPAM [Concomitant]
     Active Substance: LORAZEPAM
     Indication: Anxiety
     Dosage: 1 MILLIGRAM, PRN
     Route: 058
     Dates: start: 20210712
  14. SULFATRIM [Concomitant]
     Active Substance: SULFAMETHOXAZOLE\TRIMETHOPRIM
     Indication: Urinary tract infection
     Dosage: 1 TAB, BID
     Route: 048
     Dates: start: 20210920, end: 20211001
  15. PHENAZOPYRIDINE                    /00073802/ [Concomitant]
     Indication: Urinary tract infection
     Dosage: 200 MILLIGRAM, QD
     Route: 048
     Dates: start: 20210920, end: 20211001
  16. FOLIC ACID [Concomitant]
     Active Substance: FOLIC ACID
     Indication: Uveitis
     Dosage: 5 MILLIGRAM, QD
     Route: 048
     Dates: start: 20210928
  17. ATIVAN [Concomitant]
     Active Substance: LORAZEPAM
     Indication: Product used for unknown indication
     Dosage: 2 MILLIGRAM, BID, PRN
  18. METHOTREXATE [Concomitant]
     Active Substance: METHOTREXATE
     Indication: Uveitis
     Dosage: 0.6 MILLILITER, ONE TIME DOSE
     Route: 058
     Dates: start: 20210928, end: 20210928
  19. METHOTREXATE [Concomitant]
     Active Substance: METHOTREXATE
     Dosage: 0.8 MILLILITER, ONE TIME DOSE
     Route: 058
     Dates: start: 20211005, end: 20211005
  20. METHOTREXATE [Concomitant]
     Active Substance: METHOTREXATE
     Dosage: 1.0 MILLILITER, QWK
     Route: 058
     Dates: start: 20211012

REACTIONS (4)
  - Persistent depressive disorder [Recovered/Resolved]
  - Anxiety disorder [Not Recovered/Not Resolved]
  - Panic disorder [Not Recovered/Not Resolved]
  - Suicidal ideation [Recovered/Resolved]

NARRATIVE: CASE EVENT DATE: 20211027
